FAERS Safety Report 5856805-3 (Version None)
Quarter: 2008Q3

REPORT INFORMATION
  Report Type: 
  Country: None (occurrence: None)
  Receive Date: 20080825
  Receipt Date: 20080813
  Transmission Date: 20090109
  Serious: Yes (Other)
  Sender: FDA-Public Use
  Company Number: AU-PFIZER INC-2008068054

PATIENT
  Sex: Male

DRUGS (6)
  1. PRAZOSIN HCL [Suspect]
     Indication: HYPERTENSION
     Route: 048
  2. PRAZOSIN HCL [Suspect]
     Indication: PROSTATOMEGALY
  3. ATACAND [Suspect]
     Indication: HYPERTENSION
     Route: 048
  4. XANAX [Concomitant]
  5. ASCORBIC ACID [Concomitant]
  6. GEMFIBROZIL [Concomitant]

REACTIONS (6)
  - DEPRESSION [None]
  - DIZZINESS [None]
  - FEELING ABNORMAL [None]
  - HEADACHE [None]
  - MEMORY IMPAIRMENT [None]
  - NAUSEA [None]
